FAERS Safety Report 21214589 (Version 1)
Quarter: 2022Q3

REPORT INFORMATION
  Report Type: Spontaneous
  Country: ES (occurrence: ES)
  Receive Date: 20220816
  Receipt Date: 20220816
  Transmission Date: 20221026
  Serious: Yes (Other)
  Sender: FDA-Public Use
  Company Number: ES-AMAROX PHARMA GMBH-AMR2022ES01781

PATIENT
  Age: 77 Year
  Sex: Male

DRUGS (16)
  1. OLANZAPINE [Suspect]
     Active Substance: OLANZAPINE
     Indication: Confusional state
     Dosage: UNK
     Route: 065
  2. QUETIAPINE [Suspect]
     Active Substance: QUETIAPINE
     Indication: Confusional state
     Dosage: UNK
     Route: 065
  3. HALOPERIDOL [Suspect]
     Active Substance: HALOPERIDOL
     Indication: Confusional state
     Dosage: UNK
     Route: 065
  4. CEFTAZIDIME [Concomitant]
     Active Substance: CEFTAZIDIME
     Indication: Postoperative wound infection
     Dosage: UNK
     Route: 065
  5. CLONIDINE [Concomitant]
     Active Substance: CLONIDINE
     Indication: Confusional state
     Dosage: UNK
     Route: 065
  6. CLOXACILLIN [Concomitant]
     Active Substance: CLOXACILLIN
     Indication: Postoperative wound infection
     Dosage: UNK
     Route: 065
  7. DEXMEDETOMIDINE [Concomitant]
     Active Substance: DEXMEDETOMIDINE
     Indication: Confusional state
     Dosage: UNK
     Route: 065
  8. MORPHINE [Concomitant]
     Active Substance: MORPHINE
     Indication: Pain
     Dosage: 4.9 MILLIGRAM, ONCE A DAY
     Route: 065
  9. MORPHINE [Concomitant]
     Active Substance: MORPHINE
     Dosage: UNK(50 PERCENT OF IM WAS REPLACED WITH 25 PERCENT OF EQUIVALENT DOSE IN CONTINOUS IV INFUSION BY PCA
     Route: 065
  10. MORPHINE [Concomitant]
     Active Substance: MORPHINE
     Dosage: 50 MILLIGRAM, 3 TIMES A DAY
     Route: 065
  11. MORPHINE [Concomitant]
     Active Substance: MORPHINE
     Dosage: 120 MILLIGRAM, 3 TIMES A DAY
     Route: 065
  12. MORPHINE [Concomitant]
     Active Substance: MORPHINE
     Dosage: UNK(MST STARTED IN ASCENDING DOSES)
     Route: 065
  13. MORPHINE [Concomitant]
     Active Substance: MORPHINE
     Dosage: UNK(INCREASED TO 50 PERCENT OF THE DOSE OF MI)
     Route: 065
  14. MORPHINE [Concomitant]
     Active Substance: MORPHINE
     Dosage: 150 MILLIGRAM, 3 TIMES A DAY
     Route: 065
  15. MORPHINE [Concomitant]
     Active Substance: MORPHINE
     Dosage: 8 MILLIGRAM(7.997 MILLIGRAM PER DAY THROUGH INTRATHECAL MORPHINE (MI) PUMP CARRIER)
     Route: 065
  16. MORPHINE [Concomitant]
     Active Substance: MORPHINE
     Dosage: 200 MILLIGRAM, 3 TIMES A DAY
     Route: 065

REACTIONS (4)
  - Respiratory failure [Recovered/Resolved]
  - Condition aggravated [Recovered/Resolved]
  - Hypersomnia [Recovered/Resolved]
  - Drug ineffective [Unknown]
